FAERS Safety Report 12819329 (Version 1)
Quarter: 2016Q4

REPORT INFORMATION
  Report Type: Spontaneous
  Country: US (occurrence: US)
  Receive Date: 20161006
  Receipt Date: 20161006
  Transmission Date: 20170207
  Serious: Yes (Hospitalization)
  Sender: FDA-Public Use
  Company Number: None

PATIENT
  Age: 55 Year
  Sex: Female
  Weight: 82.4 kg

DRUGS (17)
  1. CRANBERRY CONCENTRATE [Concomitant]
     Active Substance: CRANBERRY CONCENTRATE
  2. VITAMIN B12 [Concomitant]
     Active Substance: CYANOCOBALAMIN
  3. BRINTELLIX [Concomitant]
     Active Substance: VORTIOXETINE HYDROBROMIDE
  4. PHYTODELOXE PHYTOCEREMIDES [Concomitant]
  5. HYDRO EYE [Concomitant]
  6. BRINTELLIX [Suspect]
     Active Substance: VORTIOXETINE HYDROBROMIDE
     Indication: MAJOR DEPRESSION
     Route: 048
     Dates: start: 20160501
  7. VALIUM [Suspect]
     Active Substance: DIAZEPAM
     Indication: INSOMNIA
     Route: 048
     Dates: start: 20160621
  8. EVENING PRIMROSE OIL [Concomitant]
     Active Substance: EVENING PRIMROSE OIL
  9. WELLBUTRIN XL [Concomitant]
     Active Substance: BUPROPION HYDROCHLORIDE
  10. COLLAGEN [Concomitant]
     Active Substance: COLLAGEN
  11. BIOTIN [Concomitant]
     Active Substance: BIOTIN
  12. VAGIFEM [Concomitant]
     Active Substance: ESTRADIOL
  13. VALIUM [Concomitant]
     Active Substance: DIAZEPAM
  14. ORGANIC COCONUT OIL [Concomitant]
  15. LEVOTHYROXINE. [Concomitant]
     Active Substance: LEVOTHYROXINE
  16. FISH OIL [Concomitant]
     Active Substance: FISH OIL
  17. OMEPRAZOLE. [Concomitant]
     Active Substance: OMEPRAZOLE

REACTIONS (2)
  - Lower limb fracture [None]
  - Fall [None]

NARRATIVE: CASE EVENT DATE: 20160902
